FAERS Safety Report 5700021-2 (Version None)
Quarter: 2008Q2

REPORT INFORMATION
  Report Type: 
  Country: None (occurrence: None)
  Receive Date: 20080410
  Receipt Date: 20080401
  Transmission Date: 20081010
  Serious: No
  Sender: FDA-Public Use
  Company Number: DK-ASTRAZENECA-2008SE01687

PATIENT

DRUGS (1)
  1. SEROQUEL [Suspect]

REACTIONS (1)
  - ANAEMIA [None]
